FAERS Safety Report 6523279-9 (Version None)
Quarter: 2009Q4

REPORT INFORMATION
  Report Type: 
  Country: None (occurrence: None)
  Receive Date: 20091231
  Receipt Date: 20091224
  Transmission Date: 20100525
  Serious: Yes (Hospitalization)
  Sender: FDA-Public Use
  Company Number: US-JNJFOC-20091204519

PATIENT
  Sex: Female
  Weight: 85 kg

DRUGS (36)
  1. GOLIMUMAB [Suspect]
     Route: 058
  2. GOLIMUMAB [Suspect]
     Route: 058
  3. GOLIMUMAB [Suspect]
     Route: 058
  4. GOLIMUMAB [Suspect]
     Route: 058
  5. GOLIMUMAB [Suspect]
     Route: 058
  6. GOLIMUMAB [Suspect]
     Route: 058
  7. GOLIMUMAB [Suspect]
     Route: 058
  8. GOLIMUMAB [Suspect]
     Route: 058
  9. GOLIMUMAB [Suspect]
     Route: 058
  10. GOLIMUMAB [Suspect]
     Route: 058
  11. GOLIMUMAB [Suspect]
     Route: 058
  12. GOLIMUMAB [Suspect]
     Route: 058
  13. GOLIMUMAB [Suspect]
     Indication: RHEUMATOID ARTHRITIS
     Route: 058
  14. VITAMIN D [Concomitant]
     Route: 048
  15. ADVAIR DISKUS 100/50 [Concomitant]
     Route: 055
  16. CHONDROITIN SULFATE W/GLUCOSAMINE [Concomitant]
     Route: 048
  17. CALCIUM [Concomitant]
     Route: 048
  18. AVALIDE [Concomitant]
     Route: 048
  19. FOLIC ACID [Concomitant]
  20. RANITIDINE [Concomitant]
     Route: 048
  21. MIRALAX [Concomitant]
     Route: 048
  22. AMITRIPTYLINE [Concomitant]
     Route: 048
  23. FOSAMAX PLUS D [Concomitant]
     Route: 048
  24. MACRODANTIN [Concomitant]
     Route: 048
  25. IMDUR [Concomitant]
     Route: 048
  26. VICODIN [Concomitant]
     Route: 048
  27. PREVACID [Concomitant]
     Route: 048
  28. ZOCOR [Concomitant]
     Route: 048
  29. AMBIEN [Concomitant]
     Route: 048
  30. PLAVIX [Concomitant]
     Route: 048
  31. RONDEC DM [Concomitant]
     Route: 048
  32. AMITIZA [Concomitant]
     Route: 048
  33. METHOTREXATE [Concomitant]
     Route: 048
  34. DITROPAN [Concomitant]
     Route: 048
  35. METOPROLOL [Concomitant]
     Route: 048
  36. VALIUM [Concomitant]
     Route: 048

REACTIONS (1)
  - PNEUMONITIS [None]
